FAERS Safety Report 9281085 (Version 1)
Quarter: 2013Q2

REPORT INFORMATION
  Report Type: Spontaneous
  Country: US (occurrence: None)
  Receive Date: 20130508
  Receipt Date: 20130508
  Transmission Date: 20140414
  Serious: Yes (Other)
  Sender: FDA-Public Use
  Company Number: None

PATIENT
  Age: 62 Year
  Sex: Male
  Weight: 52.62 kg

DRUGS (1)
  1. XTANDI 40MG [Suspect]
     Indication: PROSTATE CANCER
     Route: 048
     Dates: start: 20130315

REACTIONS (2)
  - Decreased appetite [None]
  - Weight decreased [None]
